FAERS Safety Report 8889326 (Version 1)
Quarter: 2012Q4

REPORT INFORMATION
  Report Type: Spontaneous
  Country: US (occurrence: None)
  Receive Date: 20121102
  Receipt Date: 20121102
  Transmission Date: 20130627
  Serious: No
  Sender: FDA-Public Use
  Company Number: None

PATIENT
  Age: 50 Year
  Sex: Female

DRUGS (3)
  1. METHIMAZOLE [Suspect]
     Dates: start: 20100512, end: 20100622
  2. URSODIOL [Concomitant]
  3. METROPOLOL [Concomitant]

REACTIONS (5)
  - Drug-induced liver injury [None]
  - Jaundice [None]
  - Hepatitis E [None]
  - Autoimmune hepatitis [None]
  - Cholestasis [None]
